FAERS Safety Report 4748706-9 (Version None)
Quarter: 2005Q3

REPORT INFORMATION
  Report Type: 
  Country: None (occurrence: None)
  Receive Date: 20050817
  Receipt Date: 20050804
  Transmission Date: 20060218
  Serious: Yes (Disabling)
  Sender: FDA-Public Use
  Company Number: 2005111701

PATIENT
  Sex: Female

DRUGS (1)
  1. NEURONTIN [Suspect]
     Indication: NEUROPATHY

REACTIONS (3)
  - CARDIAC DISORDER [None]
  - CONDITION AGGRAVATED [None]
  - DIFFICULTY IN WALKING [None]
